FAERS Safety Report 25460667 (Version 1)
Quarter: 2025Q2

REPORT INFORMATION
  Report Type: Spontaneous
  Country: GB (occurrence: GB)
  Receive Date: 20250620
  Receipt Date: 20250620
  Transmission Date: 20250716
  Serious: Yes (Other)
  Sender: DR REDDYS
  Company Number: None

PATIENT
  Age: 78 Year
  Sex: Female

DRUGS (2)
  1. FEXOFENADINE [Suspect]
     Active Substance: FEXOFENADINE HYDROCHLORIDE
     Indication: Indolent systemic mastocytosis
     Dosage: 180 MG TWICE A DAY
     Dates: end: 20250409
  2. FAMOTIDINE [Concomitant]
     Active Substance: FAMOTIDINE
     Indication: Indolent systemic mastocytosis
     Dates: start: 20231001

REACTIONS (1)
  - Swelling [Recovered/Resolved]

NARRATIVE: CASE EVENT DATE: 20250326
